FAERS Safety Report 4961788-4 (Version None)
Quarter: 2006Q1

REPORT INFORMATION
  Report Type: 
  Country: None (occurrence: None)
  Receive Date: 20060329
  Receipt Date: 20060322
  Transmission Date: 20060701
  Serious: Yes (Hospitalization)
  Sender: FDA-Public Use
  Company Number: TAP2006Q00548

PATIENT
  Age: 71 Year
  Sex: Male
  Weight: 65.8 kg

DRUGS (1)
  1. LUPRON DEPOT [Suspect]
     Indication: PROSTATE CANCER
     Dosage: 7.5 MG, ONCE, INTRAMUSCULAR
     Route: 030
     Dates: start: 20060210, end: 20060210

REACTIONS (3)
  - CONFUSIONAL STATE [None]
  - DYSARTHRIA [None]
  - FEELING ABNORMAL [None]
